FAERS Safety Report 5745029-6 (Version None)
Quarter: 2008Q2

REPORT INFORMATION
  Report Type: 
  Country: None (occurrence: None)
  Receive Date: 20080521
  Receipt Date: 20080513
  Transmission Date: 20081010
  Serious: Yes (Hospitalization, Other)
  Sender: FDA-Public Use
  Company Number: PHHY2008ES07751

PATIENT
  Age: 81 Year
  Sex: Male

DRUGS (3)
  1. VOLTAREN [Suspect]
     Indication: OSTEOARTHRITIS
     Dosage: 100 MG, UNK
     Route: 048
     Dates: start: 20080301, end: 20080407
  2. ADIRO [Suspect]
     Indication: ATRIAL FIBRILLATION
     Dosage: 100 MG, UNK
     Route: 048
     Dates: start: 20060101
  3. DOGMATIL [Concomitant]

REACTIONS (5)
  - DRUG INTERACTION [None]
  - DUODENITIS [None]
  - ENDOSCOPY ABNORMAL [None]
  - GASTRIC ULCER [None]
  - UPPER GASTROINTESTINAL HAEMORRHAGE [None]
